FAERS Safety Report 10218790 (Version 1)
Quarter: 2014Q2

REPORT INFORMATION
  Report Type: Spontaneous
  Country: DE (occurrence: DE)
  Receive Date: 20140605
  Receipt Date: 20140605
  Transmission Date: 20141212
  Serious: Yes (Death, Life-Threatening, Hospitalization)
  Sender: FDA-Public Use
  Company Number: GXKR2014DE002063

PATIENT
  Sex: 0

DRUGS (16)
  1. PREDNISOLONE [Suspect]
     Dosage: 30 MG, UNK
     Route: 048
     Dates: start: 20130808
  2. PREDNISOLONE [Suspect]
     Dosage: 20 MG, UNK
     Route: 048
     Dates: start: 20130809
  3. PREDNISOLONE [Suspect]
     Dosage: 10 MG, UNK
     Route: 048
     Dates: start: 20130810
  4. PREDNISOLONE [Suspect]
     Dosage: 10 MG, UNK
     Route: 048
     Dates: start: 20130814, end: 20130816
  5. PREDNISOLONE [Suspect]
     Dosage: 7.5 MG, UNK
     Route: 048
     Dates: start: 20130817, end: 20130819
  6. PREDNISOLONE [Suspect]
     Dosage: 5 MG, UNK
     Route: 048
     Dates: start: 20130820, end: 20130822
  7. PREDNISOLONE [Suspect]
     Dosage: 2.5 MG, UNK
     Route: 048
     Dates: start: 20130823, end: 20130824
  8. EXELON [Suspect]
     Dosage: 4.6 MG, UNK
     Route: 062
     Dates: start: 20130816, end: 20130824
  9. RISPERDAL [Suspect]
     Dosage: 0.5 MG, UNK
     Route: 048
     Dates: start: 20130819, end: 20130824
  10. METHIZOL [Concomitant]
     Dosage: 5 MG, UNK
     Route: 048
     Dates: end: 20130824
  11. ATMADISC [Concomitant]
     Dosage: 1 DF, UNK
     Route: 048
     Dates: end: 20130824
  12. INEGY [Concomitant]
     Dosage: 1 DF, UNK
     Route: 048
     Dates: end: 20130817
  13. INEGY [Concomitant]
     Dosage: 1 DF, UNK
     Route: 048
     Dates: start: 20130820, end: 20130824
  14. NOVAMINSULFON [Concomitant]
     Dosage: 1500 MG, UNK
     Route: 048
     Dates: start: 20130808, end: 20130813
  15. NOVAMINSULFON [Concomitant]
     Dosage: 2000 MG, UNK
     Route: 048
     Dates: start: 20130816, end: 20130822
  16. NOVAMINSULFON [Concomitant]
     Dosage: 2000 MG, UNK
     Route: 048
     Dates: start: 20130823, end: 20130824

REACTIONS (1)
  - Death [Fatal]
